FAERS Safety Report 8265445-0 (Version None)
Quarter: 2012Q2

REPORT INFORMATION
  Report Type: 
  Country: None (occurrence: None)
  Receive Date: 20120406
  Receipt Date: 20120403
  Transmission Date: 20120825
  Serious: Yes (Hospitalization, Congenital Anomaly, Other)
  Sender: FDA-Public Use
  Company Number: US-PFIZER INC-2010109642

PATIENT
  Sex: Male
  Weight: 2.9 kg

DRUGS (10)
  1. ZOLOFT [Suspect]
     Indication: POSTPARTUM DEPRESSION
     Dosage: 50 MG, UNK
     Route: 064
     Dates: start: 20020708
  2. INSULIN [Concomitant]
     Dosage: UNK
     Route: 064
  3. PROMETHAZINE [Concomitant]
     Indication: NAUSEA
     Dosage: 25 MG, UNK, ONE TABLET EVERY 8-12HRS
     Route: 064
     Dates: start: 20020716, end: 20021219
  4. ALBUTEROL [Concomitant]
     Dosage: 2 PUFFS
     Route: 064
     Dates: start: 20030204
  5. ZOLOFT [Suspect]
     Dosage: 100 MG, HALF TABLET DAILY
     Route: 064
     Dates: start: 20030129
  6. MULTI-VITAMINS [Concomitant]
     Dosage: UNK
     Route: 064
     Dates: start: 20021116
  7. CLARITIN [Concomitant]
     Dosage: UNK
     Route: 064
     Dates: start: 20021116
  8. ZOLOFT [Suspect]
     Indication: IRRITABILITY
     Dosage: 25 MG DAILY
     Route: 064
     Dates: start: 20021125, end: 20021130
  9. ZITHROMAX [Concomitant]
     Dosage: UNK
     Route: 064
     Dates: start: 20021017
  10. ZITHROMAX [Concomitant]
     Dosage: 250 MG, UNK
     Route: 064
     Dates: start: 20030213

REACTIONS (4)
  - DERMOID CYST [None]
  - FOETAL EXPOSURE DURING PREGNANCY [None]
  - CRANIOSYNOSTOSIS [None]
  - OBSESSIVE-COMPULSIVE PERSONALITY DISORDER [None]
